FAERS Safety Report 7057136 (Version 2)
Quarter: 2013Q2

REPORT INFORMATION
  Report Type: Report from Study
  Country: FI (occurrence: FI)
  Receive Date: 20090722
  Receipt Date: 20130607
  Transmission Date: 20140414
  Serious: Yes (Hospitalization, Other)
  Sender: FDA-Public Use
  Company Number: FI-ROCHE-642797

PATIENT
  Sex: Female

DRUGS (5)
  1. CAPECITABINE [Suspect]
     Indication: RECTAL CANCER
     Route: 048
     Dates: start: 20070305, end: 20070909
  2. OXALIPLATIN [Suspect]
     Indication: RECTAL CANCER
     Route: 042
     Dates: start: 20070305, end: 20070909
  3. BURANA [Concomitant]
  4. MAXALT [Concomitant]
  5. INDIVINA [Concomitant]

REACTIONS (11)
  - Fibrosis [Unknown]
  - Hydronephrosis [Recovered/Resolved]
  - Thrombocytopenia [Recovered/Resolved]
  - Hepatic failure [Unknown]
  - Neuropathy peripheral [Unknown]
  - Neutropenia [Unknown]
  - Fatigue [Unknown]
  - Vomiting [Unknown]
  - Constipation [Unknown]
  - Anaemia [Unknown]
  - Diarrhoea [Unknown]
